FAERS Safety Report 6962258-4 (Version None)
Quarter: 2010Q3

REPORT INFORMATION
  Report Type: 
  Country: None (occurrence: None)
  Receive Date: 20100901
  Receipt Date: 20100901
  Transmission Date: 20110219
  Serious: No
  Sender: FDA-Public Use
  Company Number: None

PATIENT
  Sex: Female

DRUGS (1)
  1. VITAMIN D3 1000IU NEXGEN PHARMA [Suspect]
     Indication: MEDICAL DIET
     Dosage: ONE SOFTGEL DAILY PO
     Route: 048

REACTIONS (5)
  - ABDOMINAL PAIN UPPER [None]
  - DIARRHOEA [None]
  - MUSCLE SPASMS [None]
  - REGURGITATION [None]
  - ULCER [None]
